FAERS Safety Report 12311225 (Version 1)
Quarter: 2016Q2

REPORT INFORMATION
  Report Type: Spontaneous
  Country: FR (occurrence: FR)
  Receive Date: 20160427
  Receipt Date: 20160427
  Transmission Date: 20160815
  Serious: Yes (Hospitalization)
  Sender: FDA-Public Use
  Company Number: FR-SA-2016SA080916

PATIENT
  Age: 79 Year
  Sex: Male

DRUGS (8)
  1. ATARAX [Suspect]
     Active Substance: HYDROXYZINE\HYDROXYZINE HYDROCHLORIDE
     Indication: AGITATION
     Dosage: FORM STRENGTH: 25 MG
     Route: 048
     Dates: end: 20151223
  2. BISOPROLOL [Concomitant]
     Active Substance: BISOPROLOL
     Route: 065
  3. TAMSULOSIN [Concomitant]
     Active Substance: TAMSULOSIN
     Route: 065
  4. DIFFU K [Concomitant]
     Active Substance: POTASSIUM CHLORIDE
     Route: 065
  5. STILNOX [Suspect]
     Active Substance: ZOLPIDEM TARTRATE
     Indication: INSOMNIA
     Route: 048
     Dates: end: 20151223
  6. TERCIAN [Concomitant]
     Active Substance: CYAMEMAZINE
     Dosage: FORM STRENGTH: 25 MG
     Route: 065
  7. KARDEGIC [Suspect]
     Active Substance: ASPIRIN LYSINE
     Indication: PHLEBITIS
     Dosage: FORM STRENGTH: 160 MG
     Route: 048
     Dates: start: 201507, end: 20151223
  8. SERESTA [Concomitant]
     Active Substance: OXAZEPAM
     Dosage: FORM STRENGTH: 50 MG
     Route: 065

REACTIONS (2)
  - Subdural haematoma [Recovered/Resolved]
  - Nervous system disorder [Recovered/Resolved]

NARRATIVE: CASE EVENT DATE: 20151223
